FAERS Safety Report 5580705-X (Version None)
Quarter: 2007Q4

REPORT INFORMATION
  Report Type: 
  Country: None (occurrence: None)
  Receive Date: 20071228
  Receipt Date: 20071214
  Transmission Date: 20080405
  Serious: Yes (Death)
  Sender: FDA-Public Use
  Company Number: CERZ-1000002

PATIENT
  Sex: Male
  Weight: 10 kg

DRUGS (1)
  1. CEREZYME [Suspect]
     Indication: GAUCHER'S DISEASE
     Dosage: Q4W, INTRAVENOUS
     Route: 042
     Dates: start: 20071113, end: 20071201

REACTIONS (1)
  - ASPIRATION [None]
